FAERS Safety Report 4917799-8 (Version None)
Quarter: 2006Q1

REPORT INFORMATION
  Report Type: 
  Country: None (occurrence: None)
  Receive Date: 20060221
  Receipt Date: 20060208
  Transmission Date: 20060701
  Serious: Yes (Hospitalization)
  Sender: FDA-Public Use
  Company Number: JP-NOVOPROD-250740

PATIENT
  Age: 59 Year
  Weight: 72 kg

DRUGS (3)
  1. NOVORAPID 30 MIX CHU FLEXPEN [Suspect]
     Indication: INSULIN-REQUIRING TYPE II DIABETES MELLITUS
     Dosage: 26 IU, QD
     Route: 058
     Dates: start: 20040811, end: 20041118
  2. SELBEX [Concomitant]
     Indication: GASTRITIS
     Dosage: 1.5 G, UNK
     Route: 048
     Dates: start: 20040916, end: 20040930
  3. GASMOTIN [Concomitant]
     Indication: GASTRITIS
     Dosage: 15 MG, UNK
     Route: 048
     Dates: start: 20040916, end: 20040930

REACTIONS (1)
  - CHOLECYSTITIS ACUTE [None]
